FAERS Safety Report 5423909-9 (Version None)
Quarter: 2007Q3

REPORT INFORMATION
  Report Type: 
  Country: None (occurrence: None)
  Receive Date: 20070823
  Receipt Date: 20070808
  Transmission Date: 20080115
  Serious: Yes (Other)
  Sender: FDA-Public Use
  Company Number: AU-ASTRAZENECA-2007AP05178

PATIENT
  Age: 70 Year
  Sex: Female

DRUGS (3)
  1. TAMOXIFEN CITRATE [Suspect]
     Route: 048
  2. FERMARA [Suspect]
     Indication: BREAST CANCER FEMALE
     Route: 048
     Dates: start: 20060315
  3. FISH OIL [Concomitant]

REACTIONS (5)
  - BLOOD IRON INCREASED [None]
  - CATARACT [None]
  - DRY EYE [None]
  - HAEMOLYSIS [None]
  - VISION BLURRED [None]
